FAERS Safety Report 4388131-6 (Version None)
Quarter: 2004Q3

REPORT INFORMATION
  Report Type: 
  Country: None (occurrence: None)
  Receive Date: 20040701
  Receipt Date: 20040505
  Transmission Date: 20050211
  Serious: Yes (Hospitalization)
  Sender: FDA-Public Use
  Company Number: NL-BRISTOL-MYERS SQUIBB COMPANY-12579272

PATIENT
  Age: 60 Year
  Sex: Male
  Weight: 91 kg

DRUGS (2)
  1. CISPLATIN [Suspect]
     Indication: BLADDER CANCER
     Dosage: THERAPY DATES: 10-MAR-2004 TO 21-APR-2004; CUMULATIVE DOSE: 450 MG
     Route: 042
     Dates: start: 20040421, end: 20040421
  2. GEMCITABINE [Suspect]
     Indication: BLADDER CANCER
     Dosage: THERAPY DATES: 10-MAR-2004 TO 21-APR-2004; CUMULATIVE DOSE: 4350 MG
     Route: 042
     Dates: start: 20040421, end: 20040421

REACTIONS (1)
  - EPISTAXIS [None]
